FAERS Safety Report 6000185-X (Version None)
Quarter: 2008Q4

REPORT INFORMATION
  Report Type: 
  Country: None (occurrence: None)
  Receive Date: 20081215
  Receipt Date: 20081210
  Transmission Date: 20090506
  Serious: Yes (Hospitalization, Disabling, Other)
  Sender: FDA-Public Use
  Company Number: US-ASTRAZENECA-2008UW12256

PATIENT
  Age: 44 Year
  Sex: Male
  Weight: 88.9 kg

DRUGS (2)
  1. SEROQUEL [Suspect]
     Indication: BIPOLAR DISORDER
     Dosage: 100 TO 200 MG
     Route: 048
     Dates: start: 20050615, end: 20060504
  2. PROZAC [Concomitant]
     Dosage: 20 TO 40 MG
     Dates: start: 19920101

REACTIONS (7)
  - ARTHROPATHY [None]
  - BLOOD CHOLESTEROL INCREASED [None]
  - DIABETES MELLITUS [None]
  - DIABETIC COMA [None]
  - HYPERGLYCAEMIA [None]
  - OBESITY [None]
  - OSTEOMYELITIS [None]
